FAERS Safety Report 4394360-8 (Version None)
Quarter: 2004Q3

REPORT INFORMATION
  Report Type: 
  Country: None (occurrence: None)
  Receive Date: 20040712
  Receipt Date: 20040701
  Transmission Date: 20050211
  Serious: Yes (Other)
  Sender: FDA-Public Use
  Company Number: US-MERCK-0407USA00442

PATIENT
  Age: 47 Year
  Sex: Male

DRUGS (6)
  1. MIDAMOR [Suspect]
     Indication: HYPERTENSION
     Route: 048
  2. DILTIAZEM HYDROCHLORIDE [Suspect]
     Indication: HYPERTENSION
     Route: 065
  3. GUANETHIDINE MONOSULFATE [Suspect]
     Indication: HYPERTENSION
     Route: 065
  4. HYDRALAZINE [Suspect]
     Route: 048
  5. HYDRODIURIL [Suspect]
     Indication: HYPERTENSION
     Route: 048
  6. ALDOMET [Suspect]
     Indication: HYPERTENSION
     Route: 048

REACTIONS (5)
  - BLOOD PRESSURE INADEQUATELY CONTROLLED [None]
  - DRUG INEFFECTIVE [None]
  - NEPHROLITHIASIS [None]
  - RENAL TUBULAR ACIDOSIS [None]
  - URETERIC OBSTRUCTION [None]
